FAERS Safety Report 8625561-8 (Version None)
Quarter: 2012Q3

REPORT INFORMATION
  Report Type: 
  Country: None (occurrence: None)
  Receive Date: 20120827
  Receipt Date: 20120820
  Transmission Date: 20120928
  Serious: Yes (Other)
  Sender: FDA-Public Use
  Company Number: US-JNJFOC-20120809953

PATIENT
  Sex: Female
  Weight: 108.86 kg

DRUGS (7)
  1. STELARA [Suspect]
     Route: 058
     Dates: start: 20110801, end: 20110101
  2. STELARA [Suspect]
     Route: 058
     Dates: start: 20120701
  3. INSULIN [Concomitant]
     Indication: DIABETES MELLITUS
     Dates: start: 19820101
  4. STELARA [Suspect]
     Route: 058
     Dates: start: 20110801, end: 20110101
  5. STELARA [Suspect]
     Route: 058
     Dates: start: 20110101, end: 20120201
  6. STELARA [Suspect]
     Indication: PSORIATIC ARTHROPATHY
     Route: 058
     Dates: start: 20110101, end: 20120201
  7. STELARA [Suspect]
     Indication: PSORIASIS
     Route: 058
     Dates: start: 20120701

REACTIONS (8)
  - HYPERTENSION [None]
  - DRUG INEFFECTIVE [None]
  - RESPIRATORY TRACT INFECTION [None]
  - GASTRIC DISORDER [None]
  - PERNICIOUS ANAEMIA [None]
  - URINARY TRACT INFECTION [None]
  - INFLUENZA LIKE ILLNESS [None]
  - DRUG DOSE OMISSION [None]
